FAERS Safety Report 14184676 (Version 3)
Quarter: 2017Q4

REPORT INFORMATION
  Report Type: Spontaneous
  Country: GB (occurrence: GB)
  Receive Date: 20171113
  Receipt Date: 20171230
  Transmission Date: 20180321
  Serious: Yes (Other)
  Sender: FDA-Public Use
  Company Number: GB-BAUSCH-BL-2017-031036

PATIENT
  Age: 43 Year
  Sex: Male

DRUGS (11)
  1. CISPLATIN. [Suspect]
     Active Substance: CISPLATIN
     Indication: TESTICULAR GERM CELL CANCER METASTATIC
     Dosage: FOUR CYCLES PLANNED OF 21 DAYS EACH; ADMINISTERED ON DAYS 1-5 OF EACH CYCLE (5); CYCLICAL
     Route: 065
     Dates: start: 20170815
  2. ONDANSETRON [Suspect]
     Active Substance: ONDANSETRON
     Indication: TESTICULAR GERM CELL CANCER METASTATIC
     Dosage: FOUR CYCLES PLANNED OF 21 DAYS EACH; ADMINISTERED ON DAYS 1-5 OF EACH CYCLE (5); CYCLICAL
     Route: 065
     Dates: start: 20170815
  3. DEXAMETHASONE. [Suspect]
     Active Substance: DEXAMETHASONE
     Indication: NAUSEA
     Dosage: FOUR CYCLES PLANNED OF 21 DAYS EACH; ADMINISTERED ON DAYS 6-8 OF EACH CYCLE (3); CYCLICAL
     Route: 065
     Dates: start: 20170815
  4. ETOPOSIDE. [Suspect]
     Active Substance: ETOPOSIDE
     Indication: TESTICULAR GERM CELL CANCER METASTATIC
     Dosage: FOUR CYCLES PLANNED OF 21 DAYS EACH; ADMINISTERED ON DAYS 1-5 OF EACH CYCLE (5); CYCLICAL
     Route: 065
     Dates: start: 20170815
  5. ONDANSETRON [Suspect]
     Active Substance: ONDANSETRON
     Indication: NAUSEA
  6. EMEND [Suspect]
     Active Substance: APREPITANT
     Indication: NAUSEA
     Dosage: FOUR CYCLES PLANNED OF 21 DAYS EACH; ADMINISTERED ON DAYS 1-3 OF EACH CYCLE (3); CYCLICAL 03/NOV/201
     Route: 065
     Dates: start: 20170815
  7. DEXAMETHASONE. [Suspect]
     Active Substance: DEXAMETHASONE
     Indication: TESTICULAR GERM CELL CANCER METASTATIC
     Dosage: ON 1-5 DAYS AND ON 6-8 DAYS,?FOUR CYCLES PLANNED OF 21 DAYS EACH; ADMINISTERED ON DAYS 6-8 OF EACH C
     Route: 065
     Dates: start: 201708
  8. ZAPONEX [Suspect]
     Active Substance: CLOZAPINE
     Indication: SCHIZOPHRENIA
     Route: 048
     Dates: start: 20151103
  9. CISPLATIN. [Suspect]
     Active Substance: CISPLATIN
     Indication: SEMINOMA
  10. ETOPOSIDE. [Suspect]
     Active Substance: ETOPOSIDE
     Indication: SEMINOMA
  11. LIPEGFILGRASTIM [Suspect]
     Active Substance: LIPEGFILGRASTIM
     Indication: PRODUCT USED FOR UNKNOWN INDICATION
     Dosage: FOUR CYCLES PLANNED OF 21 DAYS EACH; ADMINISTERED ON DAY 6 OF EACH CYCLE (SINGLE DOSE) (1); CYCLICAL
     Route: 065
     Dates: start: 20170820

REACTIONS (9)
  - Thrombocytopenia [Not Recovered/Not Resolved]
  - Platelet count decreased [Recovered/Resolved]
  - Leukopenia [Not Recovered/Not Resolved]
  - Seminoma [Not Recovered/Not Resolved]
  - Neutropenia [Not Recovered/Not Resolved]
  - Testicular germ cell cancer metastatic [Not Recovered/Not Resolved]
  - Neutrophil count decreased [Recovered/Resolved]
  - Contraindicated product administered [Unknown]
  - Platelet count increased [Recovered/Resolved]

NARRATIVE: CASE EVENT DATE: 20170620
